FAERS Safety Report 5797757-4 (Version None)
Quarter: 2008Q3

REPORT INFORMATION
  Report Type: 
  Country: None (occurrence: None)
  Receive Date: 20080702
  Receipt Date: 20080618
  Transmission Date: 20090109
  Serious: Yes (Hospitalization)
  Sender: FDA-Public Use
  Company Number: DE-NOVOPROD-276521

PATIENT
  Sex: Female

DRUGS (1)
  1. ESTRIFAM 1MG [Suspect]
     Indication: HORMONE REPLACEMENT THERAPY
     Dosage: 1 MG, QD
     Route: 048

REACTIONS (1)
  - DEEP VEIN THROMBOSIS [None]
